FAERS Safety Report 20756053 (Version 1)
Quarter: 2022Q2

REPORT INFORMATION
  Report Type: Spontaneous
  Country: US (occurrence: None)
  Receive Date: 20220426
  Receipt Date: 20220426
  Transmission Date: 20220720
  Serious: Yes (Hospitalization)
  Sender: FDA-Public Use
  Company Number: None

PATIENT
  Age: 50 Year
  Sex: Female

DRUGS (1)
  1. BOTOX [Suspect]
     Active Substance: ONABOTULINUMTOXINA
     Indication: Migraine
     Dosage: OTHER QUANTITY : 200 UNITS;?OTHER FREQUENCY : N/A;?
     Route: 030
     Dates: start: 202002

REACTIONS (2)
  - Meningitis viral [None]
  - Dizziness [None]

NARRATIVE: CASE EVENT DATE: 20220329
